FAERS Safety Report 20664494 (Version 2)
Quarter: 2022Q2

REPORT INFORMATION
  Report Type: Spontaneous
  Country: US (occurrence: US)
  Receive Date: 20220401
  Receipt Date: 20220428
  Transmission Date: 20220721
  Serious: No
  Sender: FDA-Public Use
  Company Number: US-PFIZER INC-2021822158

PATIENT
  Age: 62 Year
  Sex: Female

DRUGS (3)
  1. IBRANCE [Suspect]
     Active Substance: PALBOCICLIB
     Dosage: 100 MG
     Dates: start: 20210609
  2. IBRANCE [Suspect]
     Active Substance: PALBOCICLIB
     Dosage: 100 MG
     Dates: start: 20210706
  3. IBRANCE [Suspect]
     Active Substance: PALBOCICLIB
     Dosage: UNK
     Dates: start: 20220317

REACTIONS (6)
  - Drug ineffective [Unknown]
  - Hot flush [Unknown]
  - Cough [Unknown]
  - Pain [Unknown]
  - Chills [Unknown]
  - Exposure to SARS-CoV-2 [Unknown]
